FAERS Safety Report 8256391-7 (Version None)
Quarter: 2012Q2

REPORT INFORMATION
  Report Type: 
  Country: None (occurrence: None)
  Receive Date: 20120403
  Receipt Date: 20120321
  Transmission Date: 20120825
  Serious: Yes (Other)
  Sender: FDA-Public Use
  Company Number: US-ELI_LILLY_AND_COMPANY-US201203007343

PATIENT
  Age: 42 Year
  Sex: Female

DRUGS (2)
  1. STRATTERA [Suspect]
     Indication: ATTENTION DEFICIT/HYPERACTIVITY DISORDER
     Dosage: 40 MG, BID
     Dates: start: 20100831, end: 20111231
  2. STRATTERA [Suspect]
     Dosage: 80 MG, QD
     Dates: start: 20120101

REACTIONS (4)
  - AGITATION [None]
  - AGGRESSION [None]
  - SUICIDAL IDEATION [None]
  - DIZZINESS [None]
